FAERS Safety Report 6144795-8 (Version None)
Quarter: 2009Q2

REPORT INFORMATION
  Report Type: 
  Country: None (occurrence: None)
  Receive Date: 20090401
  Receipt Date: 20090401
  Transmission Date: 20091009
  Serious: Yes (Death)
  Sender: FDA-Public Use
  Company Number: None

PATIENT
  Age: 25 Year
  Sex: Male

DRUGS (5)
  1. TACROLIMUS [Suspect]
     Dosage: 0.15 MG/KG
  2. MYCOPHENOLATE MOFETIL(MYCOPENOLATE MOFETIL) FORMUALTION UNKNOWN [Suspect]
     Indication: RENAL TRANSPLANT
     Dosage: 250 MG, BID
  3. PREDNISOLONE [Suspect]
     Indication: RENAL TRANSPLANT
     Dosage: 1 MG/KG
  4. METHYPREDNISOLONE (METHYLPREDNISOLONE) [Concomitant]
  5. PYRIDOXINE (PYRIDOXINE) [Concomitant]

REACTIONS (15)
  - ABDOMINAL PAIN [None]
  - BIOPSY SKIN ABNORMAL [None]
  - CEREBRAL INFARCTION [None]
  - DYSPNOEA [None]
  - HEMIPARESIS [None]
  - HYPOTENSION [None]
  - INFARCTION [None]
  - MULTI-ORGAN DISORDER [None]
  - NECROSIS [None]
  - ORAL CANDIDIASIS [None]
  - PYREXIA [None]
  - RENAL INFARCT [None]
  - SHOCK [None]
  - SKIN LESION [None]
  - ZYGOMYCOSIS [None]
